FAERS Safety Report 11223495 (Version 2)
Quarter: 2016Q3

REPORT INFORMATION
  Report Type: Spontaneous
  Country: DK (occurrence: DK)
  Receive Date: 20150628
  Receipt Date: 20160804
  Transmission Date: 20161109
  Serious: Yes (Other)
  Sender: FDA-Public Use
  Company Number: PHHY2015DK076688

PATIENT
  Age: 74 Year
  Sex: Female
  Weight: 50 kg

DRUGS (6)
  1. PINEX//PARACETAMOL [Concomitant]
     Indication: PRODUCT USED FOR UNKNOWN INDICATION
     Dosage: 2 G, QD
     Route: 065
     Dates: start: 20140205
  2. DOLTARD [Concomitant]
     Indication: PRODUCT USED FOR UNKNOWN INDICATION
     Dosage: 100 MG, BID
     Route: 048
     Dates: start: 20160315
  3. TEMESTA [Concomitant]
     Active Substance: LORAZEPAM
     Indication: PRODUCT USED FOR UNKNOWN INDICATION
     Dosage: 3 MG, QD
     Route: 065
     Dates: start: 20150129
  4. ZOMETA [Suspect]
     Active Substance: ZOLEDRONIC ACID
     Indication: METASTASES TO BONE
     Dosage: 4 MG, QMO
     Route: 042
     Dates: start: 20071114
  5. SPIRIVA [Concomitant]
     Active Substance: TIOTROPIUM BROMIDE MONOHYDRATE
     Indication: PRODUCT USED FOR UNKNOWN INDICATION
     Dosage: 4 UG, QD
     Route: 065
     Dates: start: 20120112
  6. RAMIPRIL. [Concomitant]
     Active Substance: RAMIPRIL
     Indication: PRODUCT USED FOR UNKNOWN INDICATION
     Dosage: 3 MG, UNK
     Route: 065

REACTIONS (6)
  - Oral infection [Recovered/Resolved]
  - Exposed bone in jaw [Recovered/Resolved]
  - Gingivitis [Recovered/Resolved]
  - Mouth swelling [Recovered/Resolved]
  - Osteonecrosis of jaw [Recovered/Resolved]
  - Osteomyelitis [Unknown]

NARRATIVE: CASE EVENT DATE: 20150324
